FAERS Safety Report 8004002-8 (Version None)
Quarter: 2011Q4

REPORT INFORMATION
  Report Type: 
  Country: None (occurrence: None)
  Receive Date: 20111222
  Receipt Date: 20111215
  Transmission Date: 20120403
  Serious: Yes (Hospitalization)
  Sender: FDA-Public Use
  Company Number: CA-ROCHE-1007788

PATIENT
  Sex: Female

DRUGS (4)
  1. XOLAIR [Suspect]
     Indication: ASTHMA
     Route: 058
     Dates: start: 20110425
  2. ADVAIR DISKUS 100/50 [Concomitant]
  3. SPIRIVA [Concomitant]
  4. SINGULAIR [Concomitant]

REACTIONS (7)
  - BLOOD PRESSURE INCREASED [None]
  - MALAISE [None]
  - DYSPNOEA [None]
  - NASOPHARYNGITIS [None]
  - LUNG INFECTION [None]
  - LOSS OF CONSCIOUSNESS [None]
  - PANIC ATTACK [None]
